FAERS Safety Report 19779294 (Version 1)
Quarter: 2021Q3

REPORT INFORMATION
  Report Type: Spontaneous
  Country: US (occurrence: US)
  Receive Date: 20210902
  Receipt Date: 20210902
  Transmission Date: 20211014
  Serious: No
  Sender: FDA-Public Use
  Company Number: US-ASTRAZENECA-2021A665491

PATIENT
  Sex: Female
  Weight: 58.1 kg

DRUGS (5)
  1. FASENRA [Suspect]
     Active Substance: BENRALIZUMAB
     Indication: ASTHMA
     Route: 058
     Dates: start: 202012
  2. SYMBICORT [Suspect]
     Active Substance: BUDESONIDE\FORMOTEROL FUMARATE DIHYDRATE
     Indication: ASTHMA
     Dosage: 160 OF 4.5 MCG 1 PUFFS ONCE A DAY
     Route: 055
  3. JANSSEN COVID?19 VACCINE [Suspect]
     Active Substance: AD26.COV2.S
     Route: 065
  4. SYMBICORT [Suspect]
     Active Substance: BUDESONIDE\FORMOTEROL FUMARATE DIHYDRATE
     Indication: ASTHMA
     Dosage: 160 OF 4.5 MCG 2 PUFFS TWICE A DAY
     Route: 055
     Dates: start: 201911
  5. SYMBICORT [Suspect]
     Active Substance: BUDESONIDE\FORMOTEROL FUMARATE DIHYDRATE
     Indication: ASTHMA
     Dosage: 160 OF 4.5 MCG 1 PUFFS TWICE A DAY
     Route: 055

REACTIONS (7)
  - Alopecia [Not Recovered/Not Resolved]
  - Eosinophil count increased [Recovered/Resolved]
  - Pulmonary congestion [Not Recovered/Not Resolved]
  - Body height decreased [Not Recovered/Not Resolved]
  - Oropharyngeal pain [Unknown]
  - Immune system disorder [Unknown]
  - Product use issue [Not Recovered/Not Resolved]
